FAERS Safety Report 7690615-X (Version None)
Quarter: 2011Q3

REPORT INFORMATION
  Report Type: 
  Country: None (occurrence: None)
  Receive Date: 20110818
  Receipt Date: 20110808
  Transmission Date: 20111222
  Serious: Yes (Death, Hospitalization, Other)
  Sender: FDA-Public Use
  Company Number: FR-B.I. PHARMACEUTICALS,INC./RIDGEFIELD-2011-FF-00015FF

PATIENT
  Sex: Female
  Weight: 40 kg

DRUGS (9)
  1. PRADAXA [Suspect]
     Indication: ATRIAL FIBRILLATION
     Dosage: 150 MG
     Route: 048
     Dates: start: 20090101, end: 20101115
  2. NEXIUM [Concomitant]
     Dosage: 20 MG
     Route: 048
  3. PAROXETINE HCL [Concomitant]
     Dosage: 10 MG
     Route: 048
  4. CORDARONE [Concomitant]
     Dosage: 200 MG
     Route: 048
     Dates: end: 20101115
  5. LEVOTHYROXINE SODIUM [Concomitant]
     Dosage: 75 MCG
     Route: 048
  6. XANAX [Concomitant]
     Dosage: 0.25 MG
     Route: 048
  7. POTASSIUM CHLORIDE [Concomitant]
     Route: 048
     Dates: end: 20101115
  8. RAMIPRIL [Concomitant]
     Dosage: 10 MG
     Route: 048
  9. FORLAX [Concomitant]
     Dosage: 20 G
     Route: 048

REACTIONS (19)
  - SHOCK HAEMORRHAGIC [None]
  - RECTAL HAEMORRHAGE [None]
  - HAEMORRHOIDS [None]
  - ATRIOVENTRICULAR BLOCK COMPLETE [None]
  - OVERDOSE [None]
  - RENAL FAILURE ACUTE [None]
  - PROTHROMBIN LEVEL DECREASED [None]
  - METABOLIC ACIDOSIS [None]
  - HAEMOGLOBIN DECREASED [None]
  - HYPOTENSION [None]
  - PELVIC PAIN [None]
  - HYPERLACTACIDAEMIA [None]
  - FAECALOMA [None]
  - HYPOVOLAEMIA [None]
  - GASTROINTESTINAL HAEMORRHAGE [None]
  - BRADYCARDIA [None]
  - CARDIO-RESPIRATORY ARREST [None]
  - FAECAL VOMITING [None]
  - COAGULATION TIME PROLONGED [None]
